FAERS Safety Report 23595463 (Version 1)
Quarter: 2024Q1

REPORT INFORMATION
  Report Type: Spontaneous
  Country: CN (occurrence: CN)
  Receive Date: 20240305
  Receipt Date: 20240305
  Transmission Date: 20240410
  Serious: Yes (Hospitalization)
  Sender: FDA-Public Use
  Company Number: CN-MYLANLABS-2024M1018998

PATIENT
  Age: 29 Year
  Sex: Female

DRUGS (2)
  1. METFORMIN [Suspect]
     Active Substance: METFORMIN HYDROCHLORIDE
     Indication: Gestational diabetes
     Dosage: 500 MILLIGRAM, TID, RECEIVED THREE TIMES DAILY
     Route: 048
  2. ACARBOSE [Suspect]
     Active Substance: ACARBOSE
     Indication: Gestational diabetes
     Dosage: 50 MILLIGRAM, TID, RECEIVED THREE TIMES DAILY
     Route: 065

REACTIONS (1)
  - Drug ineffective [Unknown]
